FAERS Safety Report 11387859 (Version 1)
Quarter: 2015Q3

REPORT INFORMATION
  Report Type: Report from Study
  Country: JP (occurrence: JP)
  Receive Date: 20150817
  Receipt Date: 20150817
  Transmission Date: 20151125
  Serious: Yes (Hospitalization, Other)
  Sender: FDA-Public Use
  Company Number: JP-ASTELLAS-2011JP001148

PATIENT
  Age: 54 Year
  Sex: Male

DRUGS (46)
  1. RINDERON V [Suspect]
     Active Substance: BETAMETHASONE VALERATE
     Route: 048
     Dates: start: 20100909, end: 20100913
  2. PERSANTIN [Concomitant]
     Active Substance: DIPYRIDAMOLE
     Indication: LUPUS NEPHRITIS
     Route: 048
  3. FOSAMAC [Concomitant]
     Active Substance: ALENDRONATE SODIUM
     Indication: PROPHYLAXIS
     Route: 048
  4. NOVORAPID [Concomitant]
     Active Substance: INSULIN ASPART
     Indication: DIABETES MELLITUS
     Route: 065
  5. EPOETIN ALFA [Concomitant]
     Active Substance: ERYTHROPOIETIN
     Indication: NEPHROGENIC ANAEMIA
     Route: 065
     Dates: start: 20090910
  6. SODIUM BICARBONATE. [Concomitant]
     Active Substance: SODIUM BICARBONATE
     Indication: PRODUCT USED FOR UNKNOWN INDICATION
     Route: 048
     Dates: start: 20100401
  7. PARIET [Concomitant]
     Active Substance: RABEPRAZOLE SODIUM
     Indication: GASTROINTESTINAL HAEMORRHAGE
     Route: 048
     Dates: start: 20101028, end: 20110106
  8. ALBUMIN TANNATE [Concomitant]
     Active Substance: ALBUMIN BOVINE\TANNIC ACID
     Indication: DIARRHOEA
     Dosage: UNK UNK, UNKNOWN FREQ.
     Route: 048
     Dates: start: 20100913, end: 20101125
  9. TACROLIMUS. [Suspect]
     Active Substance: TACROLIMUS
     Route: 048
     Dates: start: 20090716, end: 20091104
  10. TACROLIMUS. [Suspect]
     Active Substance: TACROLIMUS
     Route: 048
     Dates: start: 20100914, end: 20101028
  11. BAKTAR [Concomitant]
     Active Substance: SULFAMETHOXAZOLE\TRIMETHOPRIM
     Indication: PROPHYLAXIS
     Route: 048
     Dates: start: 20101015, end: 20101201
  12. DIOVAN [Concomitant]
     Active Substance: VALSARTAN
     Route: 048
  13. SIGMART [Concomitant]
     Active Substance: NICORANDIL
     Indication: ANGINA PECTORIS
     Route: 048
     Dates: start: 20101116
  14. SIGMART [Concomitant]
     Active Substance: NICORANDIL
     Indication: ANGINA PECTORIS
     Route: 065
     Dates: start: 20101101, end: 20101115
  15. ZYLORIC [Concomitant]
     Active Substance: ALLOPURINOL
     Indication: HYPERURICAEMIA
     Route: 048
  16. LAC-B [Concomitant]
     Active Substance: BIFIDOBACTERIUM SPP.
     Indication: ENTEROCOLITIS
     Route: 048
     Dates: end: 20091007
  17. EPOETIN ALFA [Concomitant]
     Active Substance: ERYTHROPOIETIN
     Route: 065
  18. PREDNISOLONE. [Suspect]
     Active Substance: PREDNISOLONE
     Route: 048
     Dates: start: 20101007, end: 20110124
  19. PREDNISOLONE. [Suspect]
     Active Substance: PREDNISOLONE
     Route: 048
     Dates: start: 20110210, end: 20110223
  20. ARTIST [Concomitant]
     Active Substance: CARVEDILOL
     Indication: HYPERTENSION
     Route: 048
  21. TAKEPRON [Concomitant]
     Active Substance: LANSOPRAZOLE
     Indication: PROPHYLAXIS
     Route: 048
     Dates: end: 20101028
  22. FOSAMAC [Concomitant]
     Active Substance: ALENDRONATE SODIUM
     Indication: PROPHYLAXIS
     Route: 048
  23. BIOFERMIN                          /01617201/ [Concomitant]
     Active Substance: BACILLUS SUBTILIS\LACTOBACILLUS ACIDOPHILUS\STREPTOCOCCUS FAECAIS
     Indication: DIARRHOEA
     Route: 048
     Dates: start: 20091008
  24. DENOSINE                           /00090105/ [Concomitant]
     Indication: HEPATIC FUNCTION ABNORMAL
     Route: 065
     Dates: start: 20101118, end: 20101130
  25. ADONA                              /00056903/ [Concomitant]
     Active Substance: CARBAZOCHROME SODIUM SULFONATE
     Indication: GASTROINTESTINAL HAEMORRHAGE
     Route: 065
     Dates: start: 20101102, end: 20101115
  26. PREDNISOLONE. [Suspect]
     Active Substance: PREDNISOLONE
     Indication: LUPUS NEPHRITIS
     Route: 048
     Dates: end: 20100908
  27. RINDERON V [Suspect]
     Active Substance: BETAMETHASONE VALERATE
     Indication: LUPUS NEPHRITIS
     Dosage: 0.5 MG, ONCE DAILY
     Route: 048
     Dates: end: 20100908
  28. RINDERON V [Suspect]
     Active Substance: BETAMETHASONE VALERATE
     Route: 048
     Dates: start: 20110407, end: 20110511
  29. RINDERON V [Suspect]
     Active Substance: BETAMETHASONE VALERATE
     Route: 048
     Dates: start: 20110512
  30. CELLCEPT [Suspect]
     Active Substance: MYCOPHENOLATE MOFETIL\MYCOPHENOLATE MOFETIL HYDROCHLORIDE
     Indication: LUPUS NEPHRITIS
     Route: 048
     Dates: start: 20110112, end: 20110224
  31. ZYLORIC [Concomitant]
     Active Substance: ALLOPURINOL
     Route: 048
  32. PREDNISOLONE. [Suspect]
     Active Substance: PREDNISOLONE
     Route: 048
     Dates: start: 20110125, end: 20110209
  33. NEO-MINOPHAGEN C [Concomitant]
     Active Substance: AMMONIUM GLYCYRRHIZATE
     Indication: PRURITUS
     Route: 065
     Dates: start: 20101209, end: 20101220
  34. NEO-MINOPHAGEN C [Concomitant]
     Active Substance: AMMONIUM GLYCYRRHIZATE
     Indication: HEPATIC FUNCTION ABNORMAL
  35. TACROLIMUS. [Suspect]
     Active Substance: TACROLIMUS
     Indication: LUPUS NEPHRITIS
     Route: 048
     Dates: start: 20090618, end: 20090715
  36. TACROLIMUS. [Suspect]
     Active Substance: TACROLIMUS
     Route: 048
     Dates: start: 20101122, end: 20110106
  37. NITROPEN [Concomitant]
     Active Substance: NITROGLYCERIN
     Indication: CHEST PAIN
     Dosage: 0.3 MG, ONCE DAILY
     Route: 048
     Dates: start: 20100204, end: 20100304
  38. TACROLIMUS. [Suspect]
     Active Substance: TACROLIMUS
     Route: 048
     Dates: start: 20091105, end: 20100909
  39. TACROLIMUS. [Suspect]
     Active Substance: TACROLIMUS
     Route: 048
     Dates: start: 20100910, end: 20100913
  40. PREDNISOLONE. [Suspect]
     Active Substance: PREDNISOLONE
     Route: 048
     Dates: start: 20100914, end: 20101006
  41. RINDERON V [Suspect]
     Active Substance: BETAMETHASONE VALERATE
     Route: 048
     Dates: start: 20110224, end: 20110406
  42. KREMEZIN [Concomitant]
     Active Substance: ACTIVATED CHARCOAL
     Indication: LUPUS NEPHRITIS
     Route: 048
  43. DIOVAN [Concomitant]
     Active Substance: VALSARTAN
     Indication: HYPERTENSION
     Route: 048
  44. SIGMART [Concomitant]
     Active Substance: NICORANDIL
     Indication: ANGINA PECTORIS
     Route: 048
     Dates: end: 20101031
  45. NOVORAPID [Concomitant]
     Active Substance: INSULIN ASPART
     Route: 065
  46. NITROPEN [Concomitant]
     Active Substance: NITROGLYCERIN
     Dosage: UNK, UNKNOWN FREQ.
     Route: 048

REACTIONS (9)
  - Diarrhoea [Recovering/Resolving]
  - Acidosis [Recovering/Resolving]
  - Lupus nephritis [Recovering/Resolving]
  - Gastrointestinal haemorrhage [Recovered/Resolved]
  - Chest pain [Recovering/Resolving]
  - Pruritus [Recovered/Resolved]
  - Hepatic function abnormal [Recovered/Resolved]
  - Oedema [Recovering/Resolving]
  - Angina pectoris [Recovering/Resolving]

NARRATIVE: CASE EVENT DATE: 20090813
